FAERS Safety Report 5788452-6 (Version None)
Quarter: 2008Q2

REPORT INFORMATION
  Report Type: 
  Country: None (occurrence: None)
  Receive Date: 20080623
  Receipt Date: 20080617
  Transmission Date: 20081010
  Serious: Yes (Death)
  Sender: FDA-Public Use
  Company Number: 2008SP011911

PATIENT
  Age: 56 Year
  Sex: Male

DRUGS (2)
  1. INTRON A [Suspect]
     Indication: METASTATIC MALIGNANT MELANOMA
     Dosage: IV; TIW; SC
     Route: 042
  2. PIROXICAM [Suspect]
     Indication: METASTATIC MALIGNANT MELANOMA
     Dosage: 10 MG; QD; PO
     Route: 048

REACTIONS (3)
  - DISEASE PROGRESSION [None]
  - NEPHRITIS INTERSTITIAL [None]
  - RENAL FAILURE ACUTE [None]
